FAERS Safety Report 4503499-5 (Version None)
Quarter: 2004Q4

REPORT INFORMATION
  Report Type: 
  Country: None (occurrence: None)
  Receive Date: 20041115
  Receipt Date: 20041101
  Transmission Date: 20050328
  Serious: No
  Sender: FDA-Public Use
  Company Number: 2004AP05592

PATIENT
  Age: 50 Year
  Sex: Female

DRUGS (2)
  1. MEROPENEM [Suspect]
     Dosage: 2 G DAILY IV
     Route: 042
     Dates: start: 20040817, end: 20040818
  2. DIFLUCAN [Suspect]
     Indication: CANDIDIASIS
     Dosage: 350 MG DAILY PO
     Route: 048
     Dates: start: 20040818, end: 20040830

REACTIONS (6)
  - ALANINE AMINOTRANSFERASE INCREASED [None]
  - ASPARTATE AMINOTRANSFERASE INCREASED [None]
  - BLOOD ALKALINE PHOSPHATASE INCREASED [None]
  - BLOOD BILIRUBIN INCREASED [None]
  - GAMMA-GLUTAMYLTRANSFERASE INCREASED [None]
  - LIVER FUNCTION TEST ABNORMAL [None]
